FAERS Safety Report 7824482 (Version 4)
Quarter: 2014Q2

REPORT INFORMATION
  Report Type: Spontaneous
  Country: US (occurrence: US)
  Receive Date: 20110224
  Receipt Date: 20140508
  Transmission Date: 20141212
  Serious: Yes (Hospitalization, Disabling)
  Sender: FDA-Public Use
  Company Number: US-BAYER-2011-017324

PATIENT
  Age: 32 Year
  Sex: Female
  Weight: 70.3 kg

DRUGS (15)
  1. YAZ [Suspect]
     Indication: ACNE
     Dosage: UNK
     Dates: start: 20090402, end: 20090519
  2. YAZ [Suspect]
     Indication: CONTRACEPTION
  3. YAZ [Suspect]
     Indication: PREMENSTRUAL DYSPHORIC DISORDER
  4. YASMIN [Suspect]
     Dosage: UNK
  5. FLUOXETINE [Concomitant]
     Indication: PREMENSTRUAL DYSPHORIC DISORDER
     Dosage: UNK
     Dates: start: 2009
  6. CEFPROZIL [Concomitant]
     Indication: INFECTION
     Dosage: 500 MG, UNK
     Dates: start: 20090203
  7. POLY HISTINE FORTE [Concomitant]
     Indication: SINUSITIS
     Dosage: UNK
     Dates: start: 20090203
  8. CLARITHROMYCIN [Concomitant]
     Indication: SINUSITIS
     Dosage: 500 MG, UNK
     Dates: start: 20090402
  9. ORTHO TRICYCLEN [Concomitant]
     Dosage: UNK
     Dates: start: 20090519
  10. ALEVE [Concomitant]
     Indication: HEADACHE
  11. ALEVE [Concomitant]
     Indication: NECK PAIN
  12. BIAXIN XL [Concomitant]
     Dosage: 1, BID
     Route: 048
     Dates: start: 20090402
  13. COUGH AND COLD PREPARATIONS [Concomitant]
     Dosage: 2 EVERY 4 HOURS AS NEEDED
     Route: 048
     Dates: start: 20090402
  14. TYLENOL [Concomitant]
     Dosage: UNK UNK, PRN
     Route: 048
     Dates: start: 20090402
  15. MOTRIN [Concomitant]
     Dosage: UNK UNK, PRN
     Route: 048
     Dates: start: 20090402

REACTIONS (9)
  - Pulmonary embolism [None]
  - Deep vein thrombosis [None]
  - Intracardiac thrombus [None]
  - Pain [None]
  - Pain [None]
  - Injury [None]
  - Emotional distress [None]
  - Anxiety [None]
  - Fear of disease [None]
